FAERS Safety Report 15696149 (Version 1)
Quarter: 2018Q4

REPORT INFORMATION
  Report Type: Spontaneous
  Country: US (occurrence: US)
  Receive Date: 20181206
  Receipt Date: 20181206
  Transmission Date: 20190205
  Serious: Yes (Other)
  Sender: FDA-Public Use
  Company Number: US-BAYER-2018-225490

PATIENT
  Sex: Female

DRUGS (1)
  1. MIRENA [Suspect]
     Active Substance: LEVONORGESTREL
     Dosage: 20 MCG/24HR, CONT
     Route: 015
     Dates: start: 201208, end: 201604

REACTIONS (7)
  - Tinnitus [None]
  - Intracranial pressure increased [None]
  - Headache [None]
  - Eye pain [None]
  - Papilloedema [None]
  - Photophobia [None]
  - Weight increased [None]
